FAERS Safety Report 21217247 (Version 2)
Quarter: 2022Q3

REPORT INFORMATION
  Report Type: Report from Study
  Country: KR (occurrence: KR)
  Receive Date: 20220816
  Receipt Date: 20220909
  Transmission Date: 20221027
  Serious: Yes (Hospitalization, Other)
  Sender: FDA-Public Use
  Company Number: KR-GLAXOSMITHKLINE-KR2022GSK118666

PATIENT

DRUGS (6)
  1. BELIMUMAB [Suspect]
     Active Substance: BELIMUMAB
     Indication: Systemic lupus erythematosus
     Dosage: 700 UNK
     Route: 042
     Dates: start: 20220719
  2. BELIMUMAB [Suspect]
     Active Substance: BELIMUMAB
     Dosage: 760
     Route: 042
     Dates: start: 20220803
  3. PREDNISOLONE [Concomitant]
     Active Substance: PREDNISOLONE
     Indication: Product used for unknown indication
     Dosage: 20 MG, QD
     Route: 048
     Dates: start: 20220511, end: 20220810
  4. CIPOL-N [Concomitant]
     Indication: Product used for unknown indication
     Dosage: 50 MG, BID
     Route: 048
     Dates: start: 20211117, end: 20220810
  5. LESCOL XL SR [Concomitant]
     Indication: Hyperlipidaemia
     Dosage: 80 MG, QD
     Route: 048
     Dates: start: 20210402
  6. RAMIPRIL [Concomitant]
     Active Substance: RAMIPRIL
     Indication: Lupus nephritis
     Dosage: 2.5 MG, QD
     Route: 048
     Dates: start: 20190930

REACTIONS (1)
  - Diverticulitis [Recovered/Resolved]

NARRATIVE: CASE EVENT DATE: 20220805
